FAERS Safety Report 24065653 (Version 4)
Quarter: 2024Q4

REPORT INFORMATION
  Report Type: Spontaneous
  Country: JP (occurrence: JP)
  Receive Date: 20240709
  Receipt Date: 20241031
  Transmission Date: 20250115
  Serious: No
  Sender: PFIZER
  Company Number: JP-PFIZER INC-PV202400087722

PATIENT

DRUGS (1)
  1. NGENLA [Suspect]
     Active Substance: SOMATROGON-GHLA
     Dosage: 1.75 MG AT ONE TIME
     Route: 058

REACTIONS (3)
  - Injection site pain [Unknown]
  - Sleep disorder due to a general medical condition [Unknown]
  - Product prescribing error [Unknown]
